FAERS Safety Report 9815416 (Version 8)
Quarter: 2016Q1

REPORT INFORMATION
  Report Type: Spontaneous
  Country: US (occurrence: US)
  Receive Date: 20140114
  Receipt Date: 20160324
  Transmission Date: 20160526
  Serious: No
  Sender: FDA-Public Use
  Company Number: US-009507513-1401USA001363

PATIENT
  Sex: Male
  Weight: 80.27 kg

DRUGS (4)
  1. FINASTERIDE. [Suspect]
     Active Substance: FINASTERIDE
     Dosage: 5 MG, DAILY
     Route: 048
     Dates: start: 20071015, end: 20141217
  2. FINASTERIDE. [Suspect]
     Active Substance: FINASTERIDE
     Dosage: 1.25 MG, QD
     Route: 048
     Dates: start: 200504
  3. PROSCAR [Suspect]
     Active Substance: FINASTERIDE
     Dosage: 5 MG, QD
     Route: 048
     Dates: start: 20050427, end: 20060602
  4. PROPECIA [Suspect]
     Active Substance: FINASTERIDE
     Indication: ALOPECIA
     Dosage: 1 MG, QD
     Route: 048
     Dates: start: 1997, end: 20041213

REACTIONS (10)
  - Dermatitis contact [Unknown]
  - Semen volume decreased [Unknown]
  - Type IIa hyperlipidaemia [Unknown]
  - Wrong technique in product usage process [Unknown]
  - Sinusitis [Unknown]
  - Sexual dysfunction [Not Recovered/Not Resolved]
  - Drug administration error [Unknown]
  - Erectile dysfunction [Not Recovered/Not Resolved]
  - Inappropriate schedule of drug administration [Unknown]
  - Organic erectile dysfunction [Unknown]

NARRATIVE: CASE EVENT DATE: 1998
